FAERS Safety Report 5962984-X (Version None)
Quarter: 2008Q4

REPORT INFORMATION
  Report Type: 
  Country: None (occurrence: None)
  Receive Date: 20081124
  Receipt Date: 20081119
  Transmission Date: 20090506
  Serious: Yes (Death)
  Sender: FDA-Public Use
  Company Number: JP-BRISTOL-MYERS SQUIBB COMPANY-14416887

PATIENT
  Age: 74 Year
  Sex: Male

DRUGS (1)
  1. TAXOL [Suspect]
     Indication: PANCREATIC CARCINOMA
     Dosage: TILL 02-MAR-2007
     Route: 042
     Dates: start: 20040217, end: 20040217

REACTIONS (1)
  - INTERSTITIAL LUNG DISEASE [None]
